FAERS Safety Report 25408715 (Version 1)
Quarter: 2025Q2

REPORT INFORMATION
  Report Type: Spontaneous
  Country: US (occurrence: US)
  Receive Date: 20250607
  Receipt Date: 20250607
  Transmission Date: 20250716
  Serious: No
  Sender: SANOFI AVENTIS
  Company Number: US-SA-2025SA160874

PATIENT
  Age: 88 Year
  Sex: Male
  Weight: 80.91 kg

DRUGS (9)
  1. DUPIXENT [Suspect]
     Active Substance: DUPILUMAB
     Indication: Dermatitis atopic
     Dosage: 300 MG, QOW
     Route: 058
  2. CLOPIDOGREL BISULFATE [Concomitant]
     Active Substance: CLOPIDOGREL BISULFATE
  3. GABAPENTIN [Concomitant]
     Active Substance: GABAPENTIN
  4. ELIQUIS [Concomitant]
     Active Substance: APIXABAN
  5. ATORVASTATIN CALCIUM [Concomitant]
     Active Substance: ATORVASTATIN CALCIUM
  6. MINERALS\VITAMINS [Concomitant]
     Active Substance: MINERALS\VITAMINS
  7. ZINC SULFATE [Concomitant]
     Active Substance: ZINC SULFATE
  8. OMEPRAZOLE [Concomitant]
     Active Substance: OMEPRAZOLE
  9. VITAMIN D3 [Concomitant]
     Active Substance: CHOLECALCIFEROL

REACTIONS (2)
  - Gastroenteritis viral [Recovering/Resolving]
  - Food poisoning [Recovering/Resolving]

NARRATIVE: CASE EVENT DATE: 20250101
